FAERS Safety Report 9008893 (Version 3)
Quarter: 2013Q1

REPORT INFORMATION
  Report Type: Spontaneous
  Country: IL (occurrence: IL)
  Receive Date: 20130111
  Receipt Date: 20130131
  Transmission Date: 20140127
  Serious: Yes (Other)
  Sender: FDA-Public Use
  Company Number: IL-009507513-1301ISR002677

PATIENT
  Age: 68 Year
  Sex: Female
  Weight: 76 kg

DRUGS (4)
  1. JANUET [Suspect]
     Indication: TYPE 2 DIABETES MELLITUS
     Dosage: 50/500 MG, BID
     Route: 048
     Dates: start: 2010, end: 201301
  2. ENALAPRIL MALEATE [Concomitant]
     Dosage: 5 MG, BID
  3. VABEN [Concomitant]
     Dosage: 10 MG, QD
  4. EUTHYROX [Concomitant]
     Dosage: 50 MCG 29/M(100) , QD

REACTIONS (4)
  - Adenocarcinoma pancreas [Not Recovered/Not Resolved]
  - Depression [Unknown]
  - Insomnia [Unknown]
  - Anxiety [Unknown]
